FAERS Safety Report 5957201-0 (Version None)
Quarter: 2008Q4

REPORT INFORMATION
  Report Type: 
  Country: None (occurrence: None)
  Receive Date: 20081118
  Receipt Date: 20081106
  Transmission Date: 20090506
  Serious: Yes (Hospitalization)
  Sender: FDA-Public Use
  Company Number: US-PFIZER INC-2008094854

PATIENT
  Sex: Male

DRUGS (12)
  1. ADRIAMYCIN PFS [Suspect]
     Indication: MULTIPLE MYELOMA
     Dosage: DAILY DOSE:5MG/M2-FREQ:ON DAYS 1, 9 AND 12
     Dates: start: 20031030
  2. ADRIAMYCIN PFS [Suspect]
     Dosage: DAILY DOSE:10MG/M2-FREQ:ON DAYS 1 THROUGH 4
     Dates: start: 20040526
  3. CISPLATIN [Suspect]
     Indication: MULTIPLE MYELOMA
  4. CISPLATIN [Suspect]
     Dosage: DAILY DOSE:10MG/M2-FREQ:ON DAYS 1 THROUGH 4
     Route: 042
     Dates: start: 20040526
  5. CYCLOPHOSPHAMIDE [Suspect]
     Indication: MULTIPLE MYELOMA
     Dosage: DAILY DOSE:400MG/M2-FREQ:ON DAYS 1 THROUGH 4
     Dates: start: 20040526
  6. ETOPOSIDE [Suspect]
     Indication: MULTIPLE MYELOMA
     Dosage: DAILY DOSE:40MG/M2-FREQ:ON DAYS 1 THROUGH 4
     Dates: start: 20040526
  7. VELCADE [Suspect]
     Indication: MULTIPLE MYELOMA
     Dosage: DAILY DOSE:.8MG/M2-FREQ:ON DAYS 1, 4, 9 AND 12
     Dates: start: 20031030
  8. VELCADE [Suspect]
     Dosage: DAILY DOSE:1.3MG/M2-FREQ:ON DAYS 1, 4, 9 AND 12
     Dates: start: 20040526
  9. DEXAMETHASONE [Suspect]
     Indication: MULTIPLE MYELOMA
     Dosage: DAILY DOSE:20MG-FREQ:ON DAYS 1 THROUGH 4 AND 9 THROUGH 12
     Dates: start: 20031030
  10. DEXAMETHASONE [Suspect]
     Dosage: DAILY DOSE:40MG-FREQ:ON DAYS 1 THROUGH 4 AND 9 THROUGH 12
     Dates: start: 20040526
  11. THALIDOMIDE [Suspect]
     Indication: MULTIPLE MYELOMA
     Dosage: DAILY DOSE:50MG-FREQ:DAILY
     Dates: start: 20031030
  12. THALIDOMIDE [Suspect]
     Dosage: DAILY DOSE:100MG-FREQ:ON DAYS 1 THROUGH 12
     Dates: start: 20040526

REACTIONS (13)
  - AMNESIA [None]
  - DISEASE PROGRESSION [None]
  - FATIGUE [None]
  - HAEMOGLOBIN DECREASED [None]
  - HYPOAESTHESIA [None]
  - MULTIPLE MYELOMA [None]
  - NEUTROPHIL COUNT DECREASED [None]
  - PLATELET COUNT DECREASED [None]
  - PNEUMONIA [None]
  - PULMONARY EMBOLISM [None]
  - SYNCOPE [None]
  - THROMBOPHLEBITIS SEPTIC [None]
  - WHITE BLOOD CELL COUNT DECREASED [None]
